FAERS Safety Report 6475457-5 (Version None)
Quarter: 2009Q4

REPORT INFORMATION
  Report Type: 
  Country: None (occurrence: None)
  Receive Date: 20091204
  Receipt Date: 20091124
  Transmission Date: 20100525
  Serious: Yes (Life-Threatening, Hospitalization)
  Sender: FDA-Public Use
  Company Number: PHHY2009ES49267

PATIENT
  Age: 45 Year
  Sex: Female

DRUGS (3)
  1. GLEEVEC [Suspect]
     Indication: CHRONIC MYELOID LEUKAEMIA
     Dosage: 600 MG, UNK
     Dates: start: 20091022
  2. ALOPURINOL [Concomitant]
  3. BICARBONATE [Concomitant]

REACTIONS (5)
  - BLOOD PARATHYROID HORMONE INCREASED [None]
  - CARDIAC TAMPONADE [None]
  - PERICARDIAL DRAINAGE [None]
  - PERICARDIAL EFFUSION [None]
  - PNEUMONIA [None]
